FAERS Safety Report 5719882-6 (Version None)
Quarter: 2008Q2

REPORT INFORMATION
  Report Type: 
  Country: None (occurrence: None)
  Receive Date: 20080428
  Receipt Date: 20080414
  Transmission Date: 20081010
  Serious: Yes (Hospitalization)
  Sender: FDA-Public Use
  Company Number: AU-AMGEN-US274573

PATIENT
  Sex: Male

DRUGS (4)
  1. PANITUMUMAB [Suspect]
     Indication: COLORECTAL CANCER
     Route: 042
  2. IRINOTECAN HCL [Suspect]
  3. FLUOROURACIL [Suspect]
  4. LEUCOVORIN CALCIUM [Suspect]

REACTIONS (9)
  - ATELECTASIS [None]
  - BLOOD CULTURE POSITIVE [None]
  - CANDIDIASIS [None]
  - HYDRONEPHROSIS [None]
  - HYDROURETER [None]
  - PERICARDIAL CALCIFICATION [None]
  - RENAL FAILURE ACUTE [None]
  - SEPSIS [None]
  - STENT OCCLUSION [None]
